FAERS Safety Report 5901436-X (Version None)
Quarter: 2008Q3

REPORT INFORMATION
  Report Type: 
  Country: None (occurrence: None)
  Receive Date: 20080929
  Receipt Date: 20080919
  Transmission Date: 20090109
  Serious: Yes (Death, Other)
  Sender: FDA-Public Use
  Company Number: US-PURDUE-USA_2008_0034936

PATIENT
  Age: 27 Year
  Sex: Male

DRUGS (2)
  1. OXYCONTIN [Suspect]
     Indication: PAIN
     Dosage: UNK, UNK
  2. DILANTIN                           /00017401/ [Concomitant]
     Indication: CONVULSION

REACTIONS (4)
  - BRAIN NEOPLASM [None]
  - DRUG DEPENDENCE [None]
  - GRAND MAL CONVULSION [None]
  - TRAUMATIC COMA [None]
